FAERS Safety Report 8007927-2 (Version None)
Quarter: 2011Q4

REPORT INFORMATION
  Report Type: 
  Country: None (occurrence: None)
  Receive Date: 20111227
  Receipt Date: 20111219
  Transmission Date: 20120403
  Serious: No
  Sender: FDA-Public Use
  Company Number: US-B.I. PHARMACEUTICALS,INC./RIDGEFIELD-2011-BP-28403BP

PATIENT
  Sex: Female

DRUGS (5)
  1. MICARDIS [Concomitant]
     Indication: HYPERTENSION
     Dosage: 12.5 MG
     Route: 048
     Dates: start: 20110501
  2. GLUCOSAMINE [Concomitant]
     Indication: ARTHRITIS
     Route: 048
  3. MOBIC [Concomitant]
     Indication: ARTHRITIS
     Route: 048
  4. ISOSORBIDE DINITRATE [Concomitant]
     Indication: CARDIAC DISORDER
  5. PRADAXA [Suspect]
     Indication: ATRIAL FIBRILLATION
     Dosage: 300 MG
     Route: 048
     Dates: start: 20110501

REACTIONS (2)
  - PRURITUS [None]
  - SKIN EXFOLIATION [None]
